FAERS Safety Report 15363235 (Version 2)
Quarter: 2018Q4

REPORT INFORMATION
  Report Type: Spontaneous
  Country: US (occurrence: US)
  Receive Date: 20180907
  Receipt Date: 20181002
  Transmission Date: 20190204
  Serious: Yes (Other)
  Sender: FDA-Public Use
  Company Number: US-JAZZ-2018-US-013450

PATIENT
  Age: 24 Year
  Sex: Female

DRUGS (1)
  1. XYREM [Suspect]
     Active Substance: SODIUM OXYBATE
     Indication: PRODUCT USED FOR UNKNOWN INDICATION
     Route: 048

REACTIONS (9)
  - Narcolepsy [Unknown]
  - Seizure [Unknown]
  - Gastric bypass [Unknown]
  - Suicide attempt [Unknown]
  - Attention deficit/hyperactivity disorder [Unknown]
  - Exposure during pregnancy [Unknown]
  - Coma [Recovered/Resolved]
  - Depression [Unknown]
  - Anxiety [Unknown]
